FAERS Safety Report 11528856 (Version 2)
Quarter: 2015Q4

REPORT INFORMATION
  Report Type: Spontaneous
  Country: US (occurrence: US)
  Receive Date: 20150921
  Receipt Date: 20151009
  Transmission Date: 20160304
  Serious: No
  Sender: FDA-Public Use
  Company Number: US-PFIZER INC-2015311143

PATIENT
  Age: 11 Year
  Sex: Male

DRUGS (4)
  1. GENOTROPIN [Suspect]
     Active Substance: SOMATROPIN
     Indication: BRAIN NEOPLASM MALIGNANT
  2. GENOTROPIN [Suspect]
     Active Substance: SOMATROPIN
     Indication: DWARFISM
     Dosage: 2.4 MG, 1X/DAY
     Route: 058
  3. GENOTROPIN [Suspect]
     Active Substance: SOMATROPIN
     Indication: BRAIN NEOPLASM MALIGNANT
  4. GENOTROPIN [Suspect]
     Active Substance: SOMATROPIN
     Indication: BODY MASS INDEX
     Dosage: UNK
     Dates: start: 20150902

REACTIONS (1)
  - Injection site pain [Unknown]
